FAERS Safety Report 5894945-3 (Version None)
Quarter: 2008Q3

REPORT INFORMATION
  Report Type: 
  Country: None (occurrence: None)
  Receive Date: 20080924
  Receipt Date: 20080917
  Transmission Date: 20090109
  Serious: Yes (Other)
  Sender: FDA-Public Use
  Company Number: PHEH2008US08486

PATIENT
  Sex: Female

DRUGS (1)
  1. DIOVAN HCT [Suspect]
     Dosage: 160/12.5 MG

REACTIONS (6)
  - ECONOMIC PROBLEM [None]
  - MENTAL DISORDER [None]
  - PHYSICAL EXAMINATION [None]
  - PSYCHIATRIC EVALUATION [None]
  - STRESS [None]
  - TREATMENT NONCOMPLIANCE [None]
